FAERS Safety Report 8443230-4 (Version None)
Quarter: 2012Q2

REPORT INFORMATION
  Report Type: 
  Country: None (occurrence: None)
  Receive Date: 20120617
  Receipt Date: 20120608
  Transmission Date: 20120825
  Serious: Yes (Hospitalization, Other)
  Sender: FDA-Public Use
  Company Number: US-ROXANE LABORATORIES, INC.-2012-RO-01382RO

PATIENT
  Age: 73 Year
  Sex: Male

DRUGS (12)
  1. CALCIUM ACETATE [Suspect]
     Dosage: 667 MG
  2. ISOSORBIDE DINITRATE [Suspect]
     Dosage: 30 MG
  3. HYDRALAZINE HYDROCHLORIDE [Suspect]
     Dosage: 30 MG
  4. SPIRONOLACTONE [Suspect]
     Dosage: 25 MG
  5. CARVEDILOL [Suspect]
     Dosage: 50 MG
  6. INSULIN [Suspect]
     Route: 058
  7. DILTIAZEM [Suspect]
     Dosage: 120 MG
  8. VALSARTAN [Suspect]
     Dosage: 160 MG
  9. FUROSEMIDE [Suspect]
     Dosage: 80 MG
  10. AMLODIPINE BESYLATE [Suspect]
     Dosage: 20 MG
  11. DIGOXIN [Suspect]
     Dosage: 0.125 MG
  12. SIMVASTATIN [Suspect]
     Dosage: 20 MG

REACTIONS (8)
  - ENDOTRACHEAL INTUBATION COMPLICATION [None]
  - VOCAL CORD PARALYSIS [None]
  - PNEUMONIA [None]
  - MENTAL STATUS CHANGES [None]
  - RESPIRATORY FAILURE [None]
  - RENAL FAILURE [None]
  - TRACHEAL INJURY [None]
  - TOXICITY TO VARIOUS AGENTS [None]
